FAERS Safety Report 20965861 (Version 2)
Quarter: 2022Q3

REPORT INFORMATION
  Report Type: Spontaneous
  Country: US (occurrence: None)
  Receive Date: 20220616
  Receipt Date: 20220707
  Transmission Date: 20221027
  Serious: No
  Sender: FDA-Public Use
  Company Number: 2022A196038

PATIENT
  Age: 19334 Day
  Sex: Female
  Weight: 103.9 kg

DRUGS (22)
  1. BYDUREON BCISE [Suspect]
     Active Substance: EXENATIDE
     Indication: Diabetes mellitus
     Route: 058
  2. NEXIUM [Concomitant]
     Active Substance: ESOMEPRAZOLE MAGNESIUM
  3. LYRICA [Concomitant]
     Active Substance: PREGABALIN
     Route: 065
  4. CYMBALTA [Concomitant]
     Active Substance: DULOXETINE HYDROCHLORIDE
     Route: 048
  5. LAMOTRIGINE [Concomitant]
     Active Substance: LAMOTRIGINE
  6. METFORMIN [Concomitant]
     Active Substance: METFORMIN HYDROCHLORIDE
  7. FARXIGA [Concomitant]
     Active Substance: DAPAGLIFLOZIN PROPANEDIOL
     Dosage: 10.0MG UNKNOWN
  8. PRAVASTATIN [Concomitant]
     Active Substance: PRAVASTATIN
  9. FOLIC ACID [Concomitant]
     Active Substance: FOLIC ACID
     Dosage: 1.0MG UNKNOWN
  10. METHOTREXATE [Concomitant]
     Active Substance: METHOTREXATE
     Dosage: 250.0MG UNKNOWN
  11. DOXYCYCLINE [Concomitant]
     Active Substance: DOXYCYCLINE
     Route: 048
  12. TRAMADOL [Concomitant]
     Active Substance: TRAMADOL
  13. LORTAB [Concomitant]
     Active Substance: ACETAMINOPHEN\HYDROCODONE BITARTRATE
  14. TRESIBA [Concomitant]
     Active Substance: INSULIN DEGLUDEC
     Dosage: 60UNITS EVERYDAY
  15. DICLOFENAC [Concomitant]
     Active Substance: DICLOFENAC
     Dosage: 75 MG, 2 PILLS ONE IN MORNING ONE IN EVENING
  16. FUROSEMIDE [Concomitant]
     Active Substance: FUROSEMIDE
  17. TOPIRAMATE [Concomitant]
     Active Substance: TOPIRAMATE
  18. ALPRAZOLAM [Concomitant]
     Active Substance: ALPRAZOLAM
  19. ADDERALL [Concomitant]
     Active Substance: AMPHETAMINE ASPARTATE\AMPHETAMINE SULFATE\DEXTROAMPHETAMINE SACCHARATE\DEXTROAMPHETAMINE SULFATE
  20. VITAMIN D3 [Concomitant]
     Active Substance: CHOLECALCIFEROL
  21. HUMALOG [Concomitant]
     Active Substance: INSULIN LISPRO
     Dosage: EACH MEAL AS NEEDED SLIDING SCALE
  22. VITAMIN B12 [Concomitant]
     Active Substance: CYANOCOBALAMIN
     Dosage: ONCE A WEEK,100MCG .3 UNITS

REACTIONS (6)
  - Injection site indentation [Unknown]
  - Incorrect dose administered by device [Unknown]
  - Needle issue [Unknown]
  - Product use complaint [Unknown]
  - Device leakage [Unknown]
  - Device malfunction [Unknown]

NARRATIVE: CASE EVENT DATE: 20220523
